FAERS Safety Report 8808784 (Version 1)
Quarter: 2012Q4

REPORT INFORMATION
  Report Type: 
  Country: AT (occurrence: AT)
  Receive Date: 20120926
  Receipt Date: 20120926
  Transmission Date: 20130627
  Serious: Yes (Hospitalization)
  Sender: FDA-Public Use
  Company Number: AT-PFIZER INC-2012234336

PATIENT
  Age: 60 Year
  Sex: Female
  Weight: 99 kg

DRUGS (1)
  1. CARBOPLATIN [Suspect]
     Indication: OVARIAN NEOPLASM
     Dosage: 475 mg, UNK
     Route: 042
     Dates: start: 20120903, end: 20120903

REACTIONS (3)
  - Anaphylactic reaction [Recovered/Resolved]
  - Laryngeal oedema [Recovered/Resolved]
  - Dermatitis allergic [Recovered/Resolved]
